FAERS Safety Report 5120315-1 (Version None)
Quarter: 2006Q4

REPORT INFORMATION
  Report Type: 
  Country: None (occurrence: None)
  Receive Date: 20061004
  Receipt Date: 20060921
  Transmission Date: 20070319
  Serious: Yes (Hospitalization)
  Sender: FDA-Public Use
  Company Number: PHNU2006DE03210

PATIENT
  Sex: Female

DRUGS (2)
  1. TEGRETOL [Suspect]
     Dosage: 1-0-1 DF/DAY
     Route: 048
  2. TEGRETOL [Suspect]
     Dosage: 600 MG/DAY
     Route: 048

REACTIONS (5)
  - CONVULSION [None]
  - DRUG LEVEL BELOW THERAPEUTIC [None]
  - NAUSEA [None]
  - TREATMENT NONCOMPLIANCE [None]
  - VOMITING [None]
